FAERS Safety Report 10403134 (Version 8)
Quarter: 2015Q3

REPORT INFORMATION
  Report Type: Spontaneous
  Country: US (occurrence: US)
  Receive Date: 20140822
  Receipt Date: 20150915
  Transmission Date: 20151125
  Serious: Yes (Hospitalization, Other)
  Sender: FDA-Public Use
  Company Number: US-GLAXOSMITHKLINE-A1072144A

PATIENT
  Age: 74 Year
  Sex: Female

DRUGS (21)
  1. VENTOLIN HFA [Suspect]
     Active Substance: ALBUTEROL SULFATE
     Indication: BRONCHOSPASM
     Dosage: 90 MCG
     Route: 055
     Dates: start: 2004
  2. BIOTIN [Concomitant]
     Active Substance: BIOTIN
  3. ALBUTEROL. [Suspect]
     Active Substance: ALBUTEROL
     Indication: MULTIPLE ALLERGIES
  4. SINGULAIR [Concomitant]
     Active Substance: MONTELUKAST SODIUM
  5. ADALAT [Concomitant]
     Active Substance: NIFEDIPINE
  6. FLOVENT DISKUS [Suspect]
     Active Substance: FLUTICASONE PROPIONATE
     Indication: PRODUCT USED FOR UNKNOWN INDICATION
     Dosage: UNK, U
     Route: 065
  7. METFORMIN [Suspect]
     Active Substance: METFORMIN HYDROCHLORIDE
     Indication: PRODUCT USED FOR UNKNOWN INDICATION
     Dosage: UNK, U
     Route: 065
  8. TYLENOL [Concomitant]
     Active Substance: ACETAMINOPHEN
  9. SALBUTAMOL INHALATIONAL POWDER [Suspect]
     Active Substance: ALBUTEROL
     Indication: MULTIPLE ALLERGIES
     Dosage: 100 MG, U
     Dates: start: 20150707
  10. ALBUTEROL. [Suspect]
     Active Substance: ALBUTEROL
     Indication: BRONCHOSPASM
     Dosage: UNK, U
     Route: 065
     Dates: start: 201507
  11. TUMS [Concomitant]
     Active Substance: CALCIUM CARBONATE
  12. ATORVASTATIN [Concomitant]
     Active Substance: ATORVASTATIN
  13. ZYRTEC [Concomitant]
     Active Substance: CETIRIZINE HYDROCHLORIDE
  14. LIBRAX [Concomitant]
     Active Substance: CHLORDIAZEPOXIDE HYDROCHLORIDE\CLIDINIUM BROMIDE
  15. QVAR [Concomitant]
     Active Substance: BECLOMETHASONE DIPROPIONATE
  16. NASONEX [Concomitant]
     Active Substance: MOMETASONE FUROATE
  17. NASALCROM [Concomitant]
     Active Substance: CROMOLYN SODIUM
  18. VENTOLIN HFA [Suspect]
     Active Substance: ALBUTEROL SULFATE
     Indication: HYPERSENSITIVITY
  19. ATROVENT [Suspect]
     Active Substance: IPRATROPIUM BROMIDE
     Indication: PRODUCT USED FOR UNKNOWN INDICATION
     Dosage: UNKNOWN
  20. SALINE NOSE DROPS [Concomitant]
  21. PROTONIX [Concomitant]
     Active Substance: PANTOPRAZOLE SODIUM

REACTIONS (15)
  - Dyspnoea [Unknown]
  - Drug ineffective [Unknown]
  - Hospitalisation [Unknown]
  - Loss of consciousness [Unknown]
  - Nasal oedema [Unknown]
  - Weight decreased [Recovered/Resolved]
  - Bronchospasm [Unknown]
  - Bronchitis [Unknown]
  - Concussion [Unknown]
  - Memory impairment [Unknown]
  - Multiple allergies [Unknown]
  - Ill-defined disorder [Unknown]
  - Fall [Unknown]
  - Product substitution issue [Unknown]
  - Head injury [Unknown]

NARRATIVE: CASE EVENT DATE: 201312
